FAERS Safety Report 8044347-9 (Version None)
Quarter: 2012Q1

REPORT INFORMATION
  Report Type: 
  Country: None (occurrence: None)
  Receive Date: 20120113
  Receipt Date: 20120106
  Transmission Date: 20120608
  Serious: Yes (Hospitalization)
  Sender: FDA-Public Use
  Company Number: US-BAYER-2011-044014

PATIENT
  Age: 38 Year
  Sex: Female
  Weight: 68 kg

DRUGS (6)
  1. CLARITIN [Concomitant]
     Indication: ASTHMA
  2. DROSPIRENONE AND ETHINYL ESTRADIOL [Suspect]
     Indication: OVARIAN CYST
     Dosage: UNK
     Dates: start: 20080301, end: 20090701
  3. CLARITIN [Concomitant]
     Indication: MULTIPLE ALLERGIES
     Dosage: 10 MG, PRN
     Route: 048
  4. YASMIN [Suspect]
     Indication: OVARIAN CYST
     Dosage: UNK
     Dates: start: 20080301, end: 20090701
  5. YAZ [Suspect]
     Indication: OVARIAN CYST
     Dosage: UNK
     Dates: start: 20080301, end: 20090701
  6. ALBUTEROL [Concomitant]
     Indication: ASTHMA
     Dosage: 0.021 %, PRN

REACTIONS (13)
  - EMOTIONAL DISTRESS [None]
  - ABDOMINAL MASS [None]
  - DEEP VEIN THROMBOSIS [None]
  - PULMONARY EMBOLISM [None]
  - DYSPAREUNIA [None]
  - INJURY [None]
  - GENERAL PHYSICAL HEALTH DETERIORATION [None]
  - OBESITY [None]
  - PAIN [None]
  - ANXIETY [None]
  - PELVIC PAIN [None]
  - ABDOMINAL PAIN LOWER [None]
  - THROMBOPHLEBITIS SUPERFICIAL [None]
